FAERS Safety Report 21076844 (Version 2)
Quarter: 2022Q4

REPORT INFORMATION
  Report Type: Report from Study
  Country: US (occurrence: US)
  Receive Date: 20220713
  Receipt Date: 20221028
  Transmission Date: 20230112
  Serious: Yes (Hospitalization, Other)
  Sender: FDA-Public Use
  Company Number: US-GW PHARMA-2022-US-016375

PATIENT
  Sex: Female

DRUGS (4)
  1. EPIDIOLEX [Suspect]
     Active Substance: CANNABIDIOL
     Indication: Epilepsy
     Dosage: 1.5 MILLILITER, BID
     Route: 048
     Dates: start: 20211202
  2. EPIDIOLEX [Suspect]
     Active Substance: CANNABIDIOL
     Indication: Status epilepticus
     Dosage: 120 MILLIGRAM
     Route: 048
     Dates: start: 202202
  3. EPIDIOLEX [Suspect]
     Active Substance: CANNABIDIOL
     Indication: Severe myoclonic epilepsy of infancy
     Dosage: 100 MILLIGRAM
     Route: 048
     Dates: start: 20220517
  4. EPIDIOLEX [Suspect]
     Active Substance: CANNABIDIOL
     Indication: Disease susceptibility
     Dosage: 150 MILLIGRAM
     Route: 048
     Dates: start: 20220609

REACTIONS (5)
  - Hospitalisation [Unknown]
  - Seizure [Unknown]
  - Fatigue [Unknown]
  - Irritability [Unknown]
  - Off label use [Unknown]
